FAERS Safety Report 20554736 (Version 8)
Quarter: 2022Q3

REPORT INFORMATION
  Report Type: Spontaneous
  Country: US (occurrence: US)
  Receive Date: 20220304
  Receipt Date: 20220714
  Transmission Date: 20221027
  Serious: Yes (Other)
  Sender: FDA-Public Use
  Company Number: US-PFIZER INC-202200344097

PATIENT
  Age: 54 Year
  Sex: Female

DRUGS (6)
  1. IBRANCE [Suspect]
     Active Substance: PALBOCICLIB
     Dosage: UNK
     Dates: start: 20220228, end: 202203
  2. IBRANCE [Suspect]
     Active Substance: PALBOCICLIB
     Dosage: 125 MG, CYCLIC (TOOK 21 DAYS OF MEDICATION WITH 14 DAY BREAK)
  3. XGEVA [Suspect]
     Active Substance: DENOSUMAB
     Dosage: UNK
  4. DEXAMETHASONE [Concomitant]
     Active Substance: DEXAMETHASONE
     Dosage: UNK
  5. PEPCID [Concomitant]
     Active Substance: FAMOTIDINE
     Dosage: UNK
  6. DECADRON [Concomitant]
     Active Substance: DEXAMETHASONE
     Dosage: UNK

REACTIONS (12)
  - Immunosuppression [Unknown]
  - Neutrophil count decreased [Unknown]
  - Product dose omission in error [Unknown]
  - Fatigue [Recovering/Resolving]
  - Taste disorder [Unknown]
  - White blood cell count decreased [Recovered/Resolved]
  - Insomnia [Unknown]
  - Hunger [Unknown]
  - Vision blurred [Unknown]
  - Candida infection [Unknown]
  - Swelling face [Unknown]
  - Red blood cell count decreased [Recovering/Resolving]

NARRATIVE: CASE EVENT DATE: 20220228
